FAERS Safety Report 9747505 (Version 1)
Quarter: 2013Q4

REPORT INFORMATION
  Report Type: Report from Study
  Country: US (occurrence: US)
  Receive Date: 20131212
  Receipt Date: 20131212
  Transmission Date: 20140711
  Serious: Yes (Hospitalization)
  Sender: FDA-Public Use
  Company Number: US-ROCHE-1316281

PATIENT
  Sex: Male

DRUGS (5)
  1. PEGASYS [Suspect]
     Indication: HEPATITIS C
     Route: 065
  2. RIBAVIRIN [Suspect]
     Indication: HEPATITIS C
     Route: 065
  3. ALDACTONE (UNITED STATES) [Concomitant]
     Route: 065
  4. FUROSEMIDE [Concomitant]
     Route: 065
  5. NADOLOL [Concomitant]
     Route: 065

REACTIONS (5)
  - Ascites [Unknown]
  - Hepatic cirrhosis [Unknown]
  - Urinary tract infection [Unknown]
  - Sepsis [Unknown]
  - Disease progression [Unknown]
